FAERS Safety Report 19956028 (Version 1)
Quarter: 2021Q4

REPORT INFORMATION
  Report Type: Spontaneous
  Country: US (occurrence: US)
  Receive Date: 20211014
  Receipt Date: 20211014
  Transmission Date: 20220303
  Serious: Yes (Hospitalization)
  Sender: FDA-Public Use
  Company Number: US-NOVARTISPH-NVSC2021US231210

PATIENT
  Sex: Male
  Weight: 60.1 kg

DRUGS (2)
  1. LUTATHERA [Suspect]
     Active Substance: LUTETIUM OXODOTREOTIDE LU-177
     Indication: Neuroendocrine tumour
     Dosage: 200 MCI
     Route: 042
     Dates: start: 20210324
  2. LUTATHERA [Suspect]
     Active Substance: LUTETIUM OXODOTREOTIDE LU-177
     Dosage: 200 MCI
     Route: 042
     Dates: start: 20210519

REACTIONS (2)
  - Blood albumin decreased [Not Recovered/Not Resolved]
  - Abdominal pain [Not Recovered/Not Resolved]
